FAERS Safety Report 6006304-3 (Version None)
Quarter: 2008Q4

REPORT INFORMATION
  Report Type: 
  Country: None (occurrence: None)
  Receive Date: 20081215
  Receipt Date: 20081024
  Transmission Date: 20090506
  Serious: Yes (Hospitalization)
  Sender: FDA-Public Use
  Company Number: 8040169

PATIENT
  Age: 70 Year
  Sex: Female

DRUGS (7)
  1. KEPPRA [Suspect]
     Indication: EPILEPSY
     Dosage: 1500 MG /D PO
     Route: 048
     Dates: start: 20080825, end: 20080913
  2. LOSAPREX [Concomitant]
  3. EUTIROX /00068001/ [Concomitant]
  4. ATENOL [Concomitant]
  5. EPINITRIL [Concomitant]
  6. LANSOX [Concomitant]
  7. COUMADIN [Concomitant]

REACTIONS (1)
  - HYPERAMMONAEMIA [None]
